FAERS Safety Report 5421548-7 (Version None)
Quarter: 2007Q3

REPORT INFORMATION
  Report Type: 
  Country: None (occurrence: None)
  Receive Date: 20070821
  Receipt Date: 20070811
  Transmission Date: 20080115
  Serious: Yes (Other)
  Sender: FDA-Public Use
  Company Number: CH-PFIZER INC-2006118338

PATIENT
  Sex: Female
  Weight: 63 kg

DRUGS (6)
  1. LYRICA [Suspect]
     Indication: FIBROMYALGIA
     Route: 048
     Dates: start: 20060816, end: 20060821
  2. LYRICA [Suspect]
     Indication: NECK PAIN
  3. ASPIRIN [Concomitant]
     Indication: THROMBOSIS PROPHYLAXIS
     Dosage: DAILY DOSE:100MG
     Route: 048
  4. AMLODIPINE [Concomitant]
     Indication: HYPERTENSION
     Dosage: DAILY DOSE:5MG
     Route: 048
  5. ALL OTHER THERAPEUTIC PRODUCTS [Concomitant]
     Indication: CEREBROVASCULAR ACCIDENT PROPHYLAXIS
     Dosage: DAILY DOSE:50MG
     Route: 048
  6. IRFEN [Concomitant]
     Indication: PAIN
     Dosage: TEXT:400-600 MG
     Route: 048

REACTIONS (4)
  - CARDIAC FAILURE [None]
  - ELECTROCARDIOGRAM ABNORMAL [None]
  - EPILEPSY [None]
  - VISUAL ACUITY REDUCED [None]
